FAERS Safety Report 4268748-X (Version None)
Quarter: 2004Q1

REPORT INFORMATION
  Report Type: 
  Country: None (occurrence: None)
  Receive Date: 20040109
  Receipt Date: 20031229
  Transmission Date: 20041129
  Serious: Yes (Hospitalization)
  Sender: FDA-Public Use
  Company Number: HQWYE915329DEC03

PATIENT
  Age: 29 Year
  Sex: Female

DRUGS (3)
  1. TRIONETTA-21 (LEVONORGESTREL/ETHINYL ESTRADIOL) [Suspect]
     Indication: ORAL CONTRACEPTION
     Dosage: 1 TABLET DAILY ORAL
     Route: 048
     Dates: start: 20030728, end: 20030805
  2. CERAZETTE (DESOGESTREL,) [Suspect]
     Indication: ORAL CONTRACEPTION
     Dosage: ORAL
     Route: 048
     Dates: start: 20030401, end: 20030727
  3. FOLLINETT (ETHINYLESTRADIOL/LEVONORGESTREL,) [Suspect]
     Indication: ORAL CONTRACEPTION
     Dosage: ORAL
     Route: 048
     Dates: start: 20030301, end: 20030401

REACTIONS (8)
  - BRAIN SCAN ABNORMAL [None]
  - CHILLS [None]
  - FATIGUE [None]
  - HEADACHE [None]
  - MALAISE [None]
  - NAUSEA [None]
  - THROMBOTIC THROMBOCYTOPENIC PURPURA [None]
  - VOMITING [None]
